FAERS Safety Report 4313221-3 (Version None)
Quarter: 2004Q1

REPORT INFORMATION
  Report Type: 
  Country: None (occurrence: None)
  Receive Date: 20040308
  Receipt Date: 20030930
  Transmission Date: 20041129
  Serious: Yes (Death)
  Sender: FDA-Public Use
  Company Number: PHEH2003US09051

PATIENT
  Age: 39 Year
  Sex: Male

DRUGS (3)
  1. TRILEPTAL [Suspect]
     Indication: CONVULSION
     Dosage: 900 MG, BID
     Route: 048
  2. GABITRIL [Suspect]
     Indication: CONVULSION
     Dosage: 4MG QHS TO 20MG QAM
     Route: 048
     Dates: start: 20020106
  3. KEPPRA [Suspect]
     Indication: CONVULSION
     Dosage: 1500 MG AM/PM/1000 MG NOON
     Route: 048

REACTIONS (5)
  - ANTICONVULSANT DRUG LEVEL DECREASED [None]
  - CONVULSION [None]
  - DRUG TOXICITY [None]
  - LACERATION [None]
  - SUDDEN DEATH [None]
